FAERS Safety Report 5850982-6 (Version None)
Quarter: 2008Q3

REPORT INFORMATION
  Report Type: 
  Country: None (occurrence: None)
  Receive Date: 20080818
  Receipt Date: 20080728
  Transmission Date: 20090109
  Serious: Yes (Other)
  Sender: FDA-Public Use
  Company Number: CLOF-10176

PATIENT
  Age: 75 Year
  Sex: Female

DRUGS (6)
  1. CLOFARABINE (CLOFARABINE) [Suspect]
     Indication: ACUTE MYELOID LEUKAEMIA
     Dosage: 52 MG, QDX5, INTRAVENOUS
     Route: 042
     Dates: start: 20051114, end: 20051118
  2. FUROSEMIDE (FUROSEMIDE) [Concomitant]
  3. PIPERACILLIN SODIUM AND TAZOBACTAM SODIUM [Concomitant]
  4. GENTAMICIN [Concomitant]
  5. FUROSEMIDE (FUROSEMIDE) [Concomitant]
  6. LEVOTHYROXINE SODIUM [Concomitant]

REACTIONS (6)
  - HAEMODIALYSIS [None]
  - HYPOALBUMINAEMIA [None]
  - MALAISE [None]
  - PLEURAL EFFUSION [None]
  - RENAL FAILURE ACUTE [None]
  - SEPSIS [None]
